FAERS Safety Report 10285467 (Version 2)
Quarter: 2014Q3

REPORT INFORMATION
  Report Type: Spontaneous
  Country: JP (occurrence: JP)
  Receive Date: 20140709
  Receipt Date: 20140829
  Transmission Date: 20150326
  Serious: Yes (Other)
  Sender: FDA-Public Use
  Company Number: JP-ROCHE-1430666

PATIENT
  Age: 78 Year
  Sex: Male

DRUGS (1)
  1. LUCENTIS [Suspect]
     Active Substance: RANIBIZUMAB
     Indication: AGE-RELATED MACULAR DEGENERATION
     Route: 050

REACTIONS (5)
  - Visual acuity reduced [Unknown]
  - Drug ineffective [Unknown]
  - Drug resistance [Unknown]
  - Retinal pigment epithelial tear [Unknown]
  - Retinal exudates [Recovered/Resolved]
